FAERS Safety Report 8669098 (Version 2)
Quarter: 2013Q4

REPORT INFORMATION
  Report Type: Spontaneous
  Country: US (occurrence: US)
  Receive Date: 20120717
  Receipt Date: 20131101
  Transmission Date: 20140711
  Serious: Yes (Other)
  Sender: FDA-Public Use
  Company Number: US-009507513-1207USA003122

PATIENT
  Age: 19 Year
  Sex: Male
  Weight: 68.27 kg

DRUGS (8)
  1. FELBATOL [Suspect]
     Indication: EPILEPSY
     Dosage: 600 MG PER 5 ML
     Route: 048
     Dates: start: 1998, end: 20120619
  2. FELBATOL [Suspect]
     Dosage: 600 MG PER 5 ML
     Route: 048
     Dates: start: 2012
  3. LAMOTRIGINE [Concomitant]
     Dosage: 200 MG, BID
     Route: 048
  4. CLONIDINE [Concomitant]
     Dosage: 0.1 MG, AT BED TIME AS NEEDED
     Route: 048
  5. PROZAC [Concomitant]
     Dosage: 20 MG PER 5 ML
     Route: 048
  6. CLONAZEPAM [Concomitant]
     Dosage: HALF TO ONE TABLET AT BED TIME AS NEEDED
     Route: 048
  7. ZONISAMIDE [Concomitant]
     Dosage: 200 MG, BID
     Route: 048
  8. RISPERDAL [Concomitant]
     Dosage: 3 MG, HS
     Route: 048

REACTIONS (1)
  - Drug withdrawal convulsions [Unknown]
